FAERS Safety Report 4906027-5 (Version None)
Quarter: 2006Q1

REPORT INFORMATION
  Report Type: 
  Country: None (occurrence: None)
  Receive Date: 20060206
  Receipt Date: 20060124
  Transmission Date: 20060701
  Serious: Yes (Hospitalization)
  Sender: FDA-Public Use
  Company Number: 2004BI002154

PATIENT
  Age: 51 Year
  Sex: Male
  Weight: 45.3597 kg

DRUGS (4)
  1. AMEVIVE [Suspect]
     Indication: VITILIGO
     Dosage: 15 MG; QW; IM
     Route: 030
     Dates: start: 20040520, end: 20040708
  2. CODEINE [Concomitant]
  3. COMBIVENT [Concomitant]
  4. LODINE [Concomitant]

REACTIONS (13)
  - ARTHRALGIA [None]
  - ASPERGILLOMA [None]
  - CD4 LYMPHOCYTES INCREASED [None]
  - COUGH [None]
  - DIFFICULTY IN WALKING [None]
  - DYSPNOEA [None]
  - HISTOPLASMOSIS [None]
  - INFLUENZA LIKE ILLNESS [None]
  - MALAISE [None]
  - PULMONARY CAVITATION [None]
  - PYREXIA [None]
  - RED BLOOD CELL COUNT DECREASED [None]
  - WHITE BLOOD CELL COUNT INCREASED [None]
